FAERS Safety Report 8039607-1 (Version None)
Quarter: 2012Q1

REPORT INFORMATION
  Report Type: 
  Country: None (occurrence: None)
  Receive Date: 20120111
  Receipt Date: 20111219
  Transmission Date: 20120608
  Serious: No
  Sender: FDA-Public Use
  Company Number: US-AMGEN-USASP2011049935

PATIENT
  Age: 65 Year
  Sex: Male

DRUGS (7)
  1. PREDNISONE TAB [Concomitant]
     Indication: ARTHRITIS
     Dosage: 4 MG, QD
     Route: 048
  2. ENBREL [Suspect]
     Indication: PSORIASIS
  3. NEXIUM [Concomitant]
     Indication: GASTROOESOPHAGEAL REFLUX DISEASE
     Dosage: 40 MG, QD
     Route: 048
  4. ASPIRIN [Concomitant]
     Indication: ARTHRITIS
     Dosage: 375 MG, BID
     Route: 048
  5. ALPRAZOLAM [Concomitant]
     Dosage: 0.25 MG, QD
     Route: 048
  6. DIOVAN HCT [Concomitant]
     Indication: HYPERTENSION
     Dosage: 80 - 12.5 MG, QD
  7. ENBREL [Suspect]
     Indication: PSORIATIC ARTHROPATHY
     Dosage: 50 MG, 2 TIMES/WK
     Route: 058
     Dates: start: 20110228, end: 20111101

REACTIONS (9)
  - PAIN IN EXTREMITY [None]
  - ARTHRITIS [None]
  - HYPERSENSITIVITY [None]
  - INJECTION SITE SWELLING [None]
  - SWOLLEN TONGUE [None]
  - LIP SWELLING [None]
  - ARTHRALGIA [None]
  - URTICARIA [None]
  - SKIN INFECTION [None]
